FAERS Safety Report 9606003 (Version 2)
Quarter: 2015Q2

REPORT INFORMATION
  Report Type: Spontaneous
  Country: PR (occurrence: PR)
  Receive Date: 20131008
  Receipt Date: 20150512
  Transmission Date: 20150821
  Serious: Yes (Hospitalization)
  Sender: FDA-Public Use
  Company Number: PHHY2013PR109473

PATIENT
  Age: 67 Year
  Sex: Female

DRUGS (2)
  1. AMIODARONE [Suspect]
     Active Substance: AMIODARONE
     Indication: ARRHYTHMIA
     Dosage: 200 MG, DAILY
     Route: 048
  2. AMIODARONE [Suspect]
     Active Substance: AMIODARONE
     Indication: ARRHYTHMIA
     Route: 041

REACTIONS (22)
  - Hyperthyroidism [Recovering/Resolving]
  - Cardiac failure congestive [Unknown]
  - Aortic valve incompetence [Unknown]
  - Palpitations [Unknown]
  - Oedema [Unknown]
  - Malaise [Unknown]
  - Rales [Unknown]
  - Arrhythmia [Unknown]
  - Heart rate increased [Unknown]
  - Right atrial dilatation [Unknown]
  - Respiratory distress [Unknown]
  - Orthopnoea [Unknown]
  - Cough [Unknown]
  - Mitral valve incompetence [Unknown]
  - Weight decreased [Unknown]
  - Goitre [Unknown]
  - Left atrial dilatation [Unknown]
  - Dyspnoea [Unknown]
  - Dyspnoea exertional [Unknown]
  - Oedema peripheral [Unknown]
  - Asthenia [Unknown]
  - Atrial fibrillation [Unknown]
